FAERS Safety Report 6734681-4 (Version None)
Quarter: 2010Q2

REPORT INFORMATION
  Report Type: 
  Country: None (occurrence: None)
  Receive Date: 20100519
  Receipt Date: 20100519
  Transmission Date: 20101027
  Serious: Yes (Hospitalization)
  Sender: FDA-Public Use
  Company Number: None

PATIENT
  Sex: Male
  Weight: 83 kg

DRUGS (11)
  1. CYCLOPHOSPHAMIDE [Suspect]
     Dosage: 3280 MG
  2. CYTARABINE [Suspect]
     Dosage: 50 MG
  3. DOXORUBICIN HCL [Suspect]
     Dosage: 103 MG
  4. METHOTREXATE [Suspect]
     Dosage: 12 MG
  5. RITUXIMAB (MOAB C2B8 ANTI CD20, CHIMERIC) [Suspect]
     Dosage: 769 MG
  6. VINCRISTINE SULFATE [Suspect]
     Dosage: 2 MG
  7. ATRIPLA [Concomitant]
  8. PRILOSEC [Concomitant]
  9. SPIRONOLACTONE [Concomitant]
  10. VALTREX [Concomitant]
  11. ZOLOFT [Concomitant]

REACTIONS (4)
  - ENCEPHALOPATHY [None]
  - HEPATIC FAILURE [None]
  - MULTI-ORGAN FAILURE [None]
  - PNEUMONIA [None]
